FAERS Safety Report 24205345 (Version 1)
Quarter: 2024Q3

REPORT INFORMATION
  Report Type: Spontaneous
  Country: CH (occurrence: CH)
  Receive Date: 20240813
  Receipt Date: 20240813
  Transmission Date: 20241016
  Serious: Yes (Hospitalization, Other)
  Sender: BRISTOL MYERS SQUIBB
  Company Number: None

PATIENT
  Age: 58 Year
  Sex: Male
  Weight: 90 kg

DRUGS (11)
  1. NIVOLUMAB [Suspect]
     Active Substance: NIVOLUMAB
     Indication: Malignant melanoma
     Dates: start: 20180604, end: 20180810
  2. NIVOLUMAB [Suspect]
     Active Substance: NIVOLUMAB
     Dates: start: 20180828
  3. NIVOLUMAB [Suspect]
     Active Substance: NIVOLUMAB
     Dates: start: 20240202, end: 20240405
  4. NIVOLUMAB [Suspect]
     Active Substance: NIVOLUMAB
     Dates: start: 20240510, end: 20240524
  5. IPILIMUMAB [Suspect]
     Active Substance: IPILIMUMAB
     Indication: Malignant melanoma
     Dates: start: 20180604, end: 20180810
  6. IPILIMUMAB [Suspect]
     Active Substance: IPILIMUMAB
     Dates: start: 20240202, end: 20240405
  7. PLAQUENIL [Interacting]
     Active Substance: HYDROXYCHLOROQUINE SULFATE
     Indication: Pneumonitis
     Route: 048
  8. HYDROCORTISONE [Interacting]
     Active Substance: HYDROCORTISONE\HYDROCORTISONE ACETATE
     Indication: Hypopituitarism
     Dosage: 10 MG HYDROCORTISON PER TABLET (4-2-0-0)
     Route: 048
  9. HYDROCORTISONE [Interacting]
     Active Substance: HYDROCORTISONE\HYDROCORTISONE ACETATE
     Dosage: 10 MG HYDROCORTISON PER TABLET (4-2-0-0)
     Route: 048
  10. LEVOTHYROXINE [Concomitant]
     Active Substance: LEVOTHYROXINE\LEVOTHYROXINE SODIUM
     Indication: Hypopituitarism
     Route: 048
  11. ELIQUIS [Concomitant]
     Active Substance: APIXABAN
     Indication: Deep vein thrombosis
     Route: 048

REACTIONS (4)
  - Myocarditis [Recovering/Resolving]
  - Pneumocystis jirovecii pneumonia [Unknown]
  - Hypopituitarism [Unknown]
  - Drug interaction [Unknown]

NARRATIVE: CASE EVENT DATE: 20240301
